FAERS Safety Report 8867336 (Version 1)
Quarter: 2012Q4

REPORT INFORMATION
  Report Type: 
  Country: US (occurrence: US)
  Receive Date: 20121025
  Receipt Date: 20121025
  Transmission Date: 20130627
  Serious: No
  Sender: FDA-Public Use
  Company Number: US-AMGEN-USASP2012016124

PATIENT
  Age: 56 Year
  Sex: Female
  Weight: 79.82 kg

DRUGS (9)
  1. ENBREL [Suspect]
     Indication: PRODUCT USED FOR UNKNOWN INDICATION
     Dosage: 50 mg, 2 times/wk
     Route: 058
  2. FLUOXETINE [Concomitant]
     Dosage: 10 mg, UNK
  3. HYDROCHLOROTH [Concomitant]
     Dosage: 25 mg, UNK
  4. MULTIVITAMIN                       /01229101/ [Concomitant]
     Dosage: UNK
  5. CALCIUM                            /00060701/ [Concomitant]
     Dosage: UNK
  6. VITAMIN D /00107901/ [Concomitant]
     Dosage: UNK
  7. VITAMIN B [Concomitant]
     Dosage: UNK
  8. FISH OIL [Concomitant]
     Dosage: UNK
  9. GLUCOFLEX GLUCOSAMINE AND CHONDROITIN [Concomitant]
     Dosage: UNK

REACTIONS (3)
  - Cough [Unknown]
  - Nasopharyngitis [Unknown]
  - Influenza [Unknown]
